FAERS Safety Report 13122796 (Version 8)
Quarter: 2020Q1

REPORT INFORMATION
  Report Type: Report from Study
  Country: JP (occurrence: JP)
  Receive Date: 20170117
  Receipt Date: 20200109
  Transmission Date: 20200409
  Serious: Yes (Other)
  Sender: FDA-Public Use
  Company Number: JP-BIOGEN-2017BI00340891

PATIENT
  Age: 5 Year
  Sex: Male
  Weight: 20 kg

DRUGS (4)
  1. EFMOROCTOCOG ALFA [Suspect]
     Active Substance: EFMOROCTOCOG ALFA
     Indication: IMMUNE TOLERANCE INDUCTION
     Dosage: 1000 IU, EVERY 3 DAYS, IN THE MORNING
     Route: 042
     Dates: start: 20160703, end: 20161221
  2. EFMOROCTOCOG ALFA [Suspect]
     Active Substance: EFMOROCTOCOG ALFA
     Dosage: UNK
     Route: 042
     Dates: start: 20170118, end: 20180926
  3. FEIBA [Concomitant]
     Active Substance: ANTI-INHIBITOR COAGULANT COMPLEX
     Indication: HAEMOSTASIS
     Route: 042
     Dates: start: 20141203, end: 20170208
  4. EFMOROCTOCOG ALFA [Suspect]
     Active Substance: EFMOROCTOCOG ALFA
     Indication: FACTOR VIII DEFICIENCY
     Dosage: 2000 IU, EVERY 3 DAYS, AT NIGHT
     Route: 042
     Dates: start: 20160703, end: 20161221

REACTIONS (3)
  - Anti factor VIII antibody increased [Not Recovered/Not Resolved]
  - Off label use [Unknown]
  - Anti factor VIII antibody increased [Not Recovered/Not Resolved]

NARRATIVE: CASE EVENT DATE: 20160703
